FAERS Safety Report 11462427 (Version 1)
Quarter: 2015Q3

REPORT INFORMATION
  Report Type: Spontaneous
  Country: US (occurrence: US)
  Receive Date: 20150831
  Receipt Date: 20150831
  Transmission Date: 20151125
  Serious: Yes (Death)
  Sender: FDA-Public Use
  Company Number: US-ELI_LILLY_AND_COMPANY-US201011003621

PATIENT
  Age: 32 Year
  Sex: Female

DRUGS (1)
  1. CYMBALTA [Suspect]
     Active Substance: DULOXETINE HYDROCHLORIDE
     Indication: POSTPARTUM DEPRESSION
     Dosage: UNK, UNKNOWN
     Dates: start: 2007, end: 2009

REACTIONS (7)
  - Drug ineffective [Not Recovered/Not Resolved]
  - Decreased interest [Unknown]
  - Feeling abnormal [Unknown]
  - Agitation [Unknown]
  - Completed suicide [Fatal]
  - Depressed mood [Unknown]
  - Flat affect [Unknown]

NARRATIVE: CASE EVENT DATE: 2009
